FAERS Safety Report 7390351-3 (Version None)
Quarter: 2011Q2

REPORT INFORMATION
  Report Type: 
  Country: None (occurrence: None)
  Receive Date: 20110401
  Receipt Date: 20110325
  Transmission Date: 20111010
  Serious: Yes (Hospitalization, Other)
  Sender: FDA-Public Use
  Company Number: US-US-EMD SERONO, INC.-7048691

PATIENT
  Sex: Female
  Weight: 100 kg

DRUGS (2)
  1. REBIF [Suspect]
     Indication: MULTIPLE SCLEROSIS
     Route: 058
     Dates: start: 20030101
  2. OTHER UNSPECIFIED MEDICATIONS [Concomitant]

REACTIONS (2)
  - DEPRESSION [None]
  - HERPES ZOSTER [None]
